FAERS Safety Report 22336420 (Version 1)
Quarter: 2023Q2

REPORT INFORMATION
  Report Type: Report from Study
  Country: US (occurrence: None)
  Receive Date: 20230518
  Receipt Date: 20230518
  Transmission Date: 20230721
  Serious: Yes (Life-Threatening, Other)
  Sender: FDA-Public Use
  Company Number: US-ROCHE-3349501

PATIENT

DRUGS (11)
  1. RITUXIMAB [Suspect]
     Active Substance: RITUXIMAB
     Indication: Burkitt^s lymphoma
     Dosage: RECEIVED SUBSEQUENT DOSES ON 30/JAN/2013, 22/FEB/2013, 15/MAR/2013, 05/APR/2013, 26/APR/2013, 17/MAY
     Route: 041
     Dates: start: 20130125
  2. DOXORUBICIN [Suspect]
     Active Substance: DOXORUBICIN
     Indication: Burkitt^s lymphoma
     Dosage: RECEIVED SUBSEQUENT DOSES ON 22/FEB/2013, 15/MAR/2013, 05/APR/2013, 26/APR/2013, 17/MAY/2013
     Route: 042
     Dates: start: 20130126
  3. CYCLOPHOSPHAMIDE [Suspect]
     Active Substance: CYCLOPHOSPHAMIDE
     Indication: Burkitt^s lymphoma
     Route: 042
     Dates: start: 20130130
  4. CYCLOPHOSPHAMIDE [Suspect]
     Active Substance: CYCLOPHOSPHAMIDE
     Dosage: RECEIVED SUBSEQUENT DOSES ON 20/MAR/2013, 10/APR/2013
     Route: 042
     Dates: start: 20130227
  5. CYCLOPHOSPHAMIDE [Suspect]
     Active Substance: CYCLOPHOSPHAMIDE
     Route: 042
     Dates: start: 20130501
  6. CYCLOPHOSPHAMIDE [Suspect]
     Active Substance: CYCLOPHOSPHAMIDE
     Route: 042
     Dates: start: 20130522
  7. ETOPOSIDE [Suspect]
     Active Substance: ETOPOSIDE
     Indication: Burkitt^s lymphoma
     Dosage: RECEIVED SUBSEQUENT DOSES ON 22/FEB/2013, 16/MAR/2013, 05/APR/2013, 26/APR/2013, 17/MAY/2013
     Route: 042
     Dates: start: 20130126
  8. VINCRISTINE [Suspect]
     Active Substance: VINCRISTINE
     Indication: Burkitt^s lymphoma
     Dosage: RECEIVED SUBSEQUENT DOSES ON  22/FEB/2013, 16/MAR/2013, 05/APR/2013, 26/APR/2013, 17/MAY/2013
     Route: 042
     Dates: start: 20130126
  9. PREDNISONE [Suspect]
     Active Substance: PREDNISONE
     Indication: Burkitt^s lymphoma
     Dosage: RECEIVED SUBSEQUENT DOSES ON 22/FEB/2013, 15/MAR/2013, 05/APR/2013, 26/APR/2013, 17/MAY/2013
     Route: 042
     Dates: start: 20130125
  10. FILGRASTIM [Suspect]
     Active Substance: FILGRASTIM
     Indication: Burkitt^s lymphoma
     Dosage: RECEIVED SUBSEQUENT DOSES ON 28/FEB/2013, 21/MAR/2013, 11/APR/2013, 02/MAY/2013, 23/MAY/2023
     Route: 065
     Dates: start: 20130131
  11. METHOTREXATE [Suspect]
     Active Substance: METHOTREXATE
     Indication: Burkitt^s lymphoma
     Dosage: RECEIVED SUBSEQUENT DOSES ON 05/APR/2013, 09/APR/2013, 26/APR/2013, 29/APR/2013, 17/MAY/2013, 20/MAY
     Route: 065
     Dates: start: 20130318

REACTIONS (8)
  - Lower gastrointestinal haemorrhage [Recovered/Resolved]
  - Respiratory failure [Recovered/Resolved]
  - Febrile neutropenia [Recovered/Resolved]
  - Anaemia [Recovered/Resolved]
  - White blood cell count decreased [Recovered/Resolved]
  - Platelet count decreased [Recovered/Resolved]
  - Lymphocyte count decreased [Recovered/Resolved]
  - Neutrophil count decreased [Recovered/Resolved]

NARRATIVE: CASE EVENT DATE: 20130206
